FAERS Safety Report 5938042-7 (Version None)
Quarter: 2008Q4

REPORT INFORMATION
  Report Type: 
  Country: None (occurrence: None)
  Receive Date: 20081031
  Receipt Date: 20081020
  Transmission Date: 20090506
  Serious: Yes (Death, Other)
  Sender: FDA-Public Use
  Company Number: US-PFIZER INC-2008088543

PATIENT
  Sex: Female
  Weight: 45.454 kg

DRUGS (3)
  1. BEXTRA [Suspect]
     Indication: HIP ARTHROPLASTY
     Dates: start: 20041217
  2. BEXTRA [Suspect]
     Indication: KNEE OPERATION
  3. VIOXX [Concomitant]

REACTIONS (2)
  - CARDIAC DISORDER [None]
  - DEMENTIA ALZHEIMER'S TYPE [None]
